FAERS Safety Report 8645210 (Version 2)
Quarter: 2012Q4

REPORT INFORMATION
  Report Type: 
  Country: US (occurrence: US)
  Receive Date: 20120702
  Receipt Date: 20120911
  Transmission Date: 20130627
  Serious: Yes (Hospitalization, Other)
  Sender: FDA-Public Use
  Company Number: US-PFIZER INC-2012155962

PATIENT
  Age: 58 Year
  Sex: Male

DRUGS (9)
  1. CHANTIX [Suspect]
     Indication: SMOKING CESSATION THERAPY
     Dosage: 0.5 mg/1 mg
     Dates: start: 200702, end: 200703
  2. CHANTIX [Suspect]
     Dosage: 0.5 mg/1 mg
     Dates: start: 200706, end: 200707
  3. CHANTIX [Suspect]
     Dosage: 0.5 mg/1 mg
     Dates: start: 200710, end: 200711
  4. CHANTIX [Suspect]
     Dosage: 0.5 mg/1 mg
     Dates: start: 200806, end: 200811
  5. AVODART [Concomitant]
     Indication: PROSTATOMEGALY
     Dosage: UNK
     Dates: start: 2001
  6. TAMSULOSIN [Concomitant]
     Indication: PROSTATOMEGALY
     Dosage: UNK
     Dates: start: 2001
  7. METHOCARBAMOL [Concomitant]
     Indication: PAIN
     Dosage: UNK
     Dates: start: 2001, end: 2012
  8. SULINDAC [Concomitant]
     Indication: PAIN
     Dosage: UNK
     Dates: start: 2001, end: 2012
  9. ACIPHEX [Concomitant]
     Indication: GASTROOESOPHAGEAL REFLUX DISEASE
     Dosage: UNK
     Dates: start: 2007

REACTIONS (8)
  - Suicidal ideation [Not Recovered/Not Resolved]
  - Depression [Not Recovered/Not Resolved]
  - Anxiety [Not Recovered/Not Resolved]
  - Abnormal behaviour [Unknown]
  - Agitation [Unknown]
  - Irritability [Unknown]
  - Headache [Unknown]
  - Dizziness [Unknown]
